FAERS Safety Report 15300900 (Version 2)
Quarter: 2018Q3

REPORT INFORMATION
  Report Type: Spontaneous
  Country: JP (occurrence: JP)
  Receive Date: 20180821
  Receipt Date: 20180829
  Transmission Date: 20181010
  Serious: No
  Sender: FDA-Public Use
  Company Number: JP-JNJFOC-20180821581

PATIENT
  Age: 5 Decade
  Sex: Female

DRUGS (3)
  1. INVEGA [Suspect]
     Active Substance: PALIPERIDONE
     Indication: SCHIZOPHRENIA
     Route: 048
     Dates: start: 20180501, end: 20180813
  2. INVEGA [Suspect]
     Active Substance: PALIPERIDONE
     Indication: SCHIZOPHRENIA
     Dosage: IN THE MORNING AND AFTERNOON
     Route: 048
     Dates: start: 20180814
  3. TASMOLIN [Suspect]
     Active Substance: BIPERIDEN
     Indication: SCHIZOPHRENIA
     Route: 048
     Dates: start: 20180501

REACTIONS (2)
  - Inappropriate schedule of drug administration [Not Recovered/Not Resolved]
  - Off label use [Not Recovered/Not Resolved]

NARRATIVE: CASE EVENT DATE: 20180814
